FAERS Safety Report 20823953 (Version 2)
Quarter: 2022Q2

REPORT INFORMATION
  Report Type: Report from Study
  Country: PT (occurrence: PT)
  Receive Date: 20220513
  Receipt Date: 20220517
  Transmission Date: 20220721
  Serious: Yes (Death, Hospitalization)
  Sender: FDA-Public Use
  Company Number: PT-ABBVIE-22K-130-4392169-00

PATIENT
  Age: 84 Year
  Sex: Female

DRUGS (4)
  1. CARBIDOPA\LEVODOPA [Suspect]
     Active Substance: CARBIDOPA\LEVODOPA
     Indication: Parkinson^s disease
     Dosage: 20 MG  5 MG, MORN 8CC, MAINT 5.2CC/H, EXTRA 1CC
     Route: 050
     Dates: start: 20091113
  2. CARBIDOPA\LEVODOPA [Suspect]
     Active Substance: CARBIDOPA\LEVODOPA
     Dosage: 20 MG  5 MG (PEG PERFUSION), MORN 8CC, MAINT 4.9CC/H, EXTRA 1CC
     Route: 050
     Dates: start: 2021, end: 20220508
  3. RIVASTIGMINE [Concomitant]
     Active Substance: RIVASTIGMINE
     Indication: Product used for unknown indication
  4. MIRTAZAPINE [Concomitant]
     Active Substance: MIRTAZAPINE
     Indication: Product used for unknown indication

REACTIONS (5)
  - Atelectasis [Fatal]
  - Respiratory failure [Fatal]
  - Colitis [Unknown]
  - Proctitis [Unknown]
  - Inflammatory marker increased [Unknown]

NARRATIVE: CASE EVENT DATE: 20220101
